FAERS Safety Report 10733264 (Version 1)
Quarter: 2015Q1

REPORT INFORMATION
  Report Type: Spontaneous
  Country: US (occurrence: US)
  Receive Date: 20150123
  Receipt Date: 20150123
  Transmission Date: 20150721
  Serious: Yes (Other)
  Sender: FDA-Public Use
  Company Number: US-BAYER-2015-007566

PATIENT
  Sex: Female
  Weight: 66 kg

DRUGS (2)
  1. BETASERON [Suspect]
     Active Substance: INTERFERON BETA-1B
     Indication: MULTIPLE SCLEROSIS
     Dosage: 0.25 MG, QOD
     Route: 058
  2. TECFIDERA [Suspect]
     Active Substance: DIMETHYL FUMARATE

REACTIONS (6)
  - Drug ineffective [Unknown]
  - Flushing [Unknown]
  - Abdominal discomfort [Unknown]
  - Abdominal distension [Unknown]
  - Pain [Unknown]
  - Herpes zoster [Unknown]
